FAERS Safety Report 6381902-6 (Version None)
Quarter: 2009Q3

REPORT INFORMATION
  Report Type: 
  Country: None (occurrence: None)
  Receive Date: 20090925
  Receipt Date: 20090915
  Transmission Date: 20100115
  Serious: No
  Sender: FDA-Public Use
  Company Number: 230621J09USA

PATIENT
  Age: 43 Year
  Sex: Female

DRUGS (4)
  1. REBIF [Suspect]
     Indication: MULTIPLE SCLEROSIS
     Dosage: 44 MCG, 3 IN 1 WEEKS, SUBCUTANEOUS
     Route: 058
     Dates: start: 20050311
  2. PREDNISONE TAB [Concomitant]
  3. MOTRIN [Concomitant]
  4. MULTI-VITAMINS [Concomitant]

REACTIONS (5)
  - ASTHMA [None]
  - CONDITION AGGRAVATED [None]
  - DISEASE RECURRENCE [None]
  - MALAISE [None]
  - UPPER RESPIRATORY TRACT INFECTION [None]
